FAERS Safety Report 19308431 (Version 1)
Quarter: 2021Q2

REPORT INFORMATION
  Report Type: Spontaneous
  Country: US (occurrence: US)
  Receive Date: 20210526
  Receipt Date: 20210526
  Transmission Date: 20210717
  Serious: Yes (Hospitalization, Other)
  Sender: FDA-Public Use
  Company Number: US-SAMSUNG BIOEPIS-SB-2021-12556

PATIENT
  Age: 16 Year
  Sex: Female

DRUGS (3)
  1. PREDNISONE. [Suspect]
     Active Substance: PREDNISONE
     Indication: JUVENILE IDIOPATHIC ARTHRITIS
     Route: 065
  2. INFLIXIMAB [Suspect]
     Active Substance: INFLIXIMAB
     Indication: JUVENILE IDIOPATHIC ARTHRITIS
     Route: 042
  3. METHOTREXATE. [Suspect]
     Active Substance: METHOTREXATE
     Indication: JUVENILE IDIOPATHIC ARTHRITIS
     Route: 065

REACTIONS (8)
  - Pneumonia [Recovered/Resolved]
  - Fibromyalgia [Unknown]
  - Off label use [Unknown]
  - Retinal pigment epitheliopathy [Recovered/Resolved]
  - Disseminated coccidioidomycosis [Recovering/Resolving]
  - Meningitis coccidioides [Recovered/Resolved]
  - Juvenile idiopathic arthritis [Unknown]
  - Phonophobia [Unknown]
